FAERS Safety Report 16026314 (Version 1)
Quarter: 2019Q1

REPORT INFORMATION
  Report Type: Spontaneous
  Country: US (occurrence: US)
  Receive Date: 20190302
  Receipt Date: 20190302
  Transmission Date: 20190418
  Serious: No
  Sender: FDA-Public Use
  Company Number: US-NOVOPROD-629788

PATIENT
  Age: 67 Year
  Sex: Female

DRUGS (3)
  1. VICTOZA [Suspect]
     Active Substance: LIRAGLUTIDE
     Dosage: 1.2 MG, QD
     Route: 058
     Dates: start: 2018, end: 2018
  2. VICTOZA [Suspect]
     Active Substance: LIRAGLUTIDE
     Dosage: 1.8 MG, QD
     Route: 058
     Dates: start: 2018
  3. VICTOZA [Suspect]
     Active Substance: LIRAGLUTIDE
     Indication: TYPE 2 DIABETES MELLITUS
     Dosage: UNK
     Route: 058
     Dates: start: 20180101, end: 2018

REACTIONS (5)
  - Weight increased [Not Recovered/Not Resolved]
  - Injection site injury [Not Recovered/Not Resolved]
  - Weight decreased [Recovered/Resolved]
  - Injection site pain [Not Recovered/Not Resolved]
  - Gastric dilatation [Not Recovered/Not Resolved]

NARRATIVE: CASE EVENT DATE: 2018
